FAERS Safety Report 6888289-0 (Version None)
Quarter: 2010Q3

REPORT INFORMATION
  Report Type: 
  Country: None (occurrence: None)
  Receive Date: 20100730
  Receipt Date: 20100726
  Transmission Date: 20110219
  Serious: Yes (Death)
  Sender: FDA-Public Use
  Company Number: DE-WYE-G06459910

PATIENT
  Age: 70 Year
  Sex: Female
  Weight: 78 kg

DRUGS (4)
  1. TORISEL [Suspect]
     Indication: MANTLE CELL LYMPHOMA
     Dosage: UNKNOWN
     Route: 042
     Dates: start: 20100121
  2. OMEPRAZOLE [Concomitant]
     Indication: GASTRITIS PROPHYLAXIS
     Route: 048
  3. DEXAMETHASONE [Concomitant]
     Indication: DISEASE PROGRESSION
  4. LENALIDOMIDE [Suspect]
     Indication: MANTLE CELL LYMPHOMA
     Dosage: UNKNOWN
     Route: 048

REACTIONS (3)
  - CARDIOGENIC SHOCK [None]
  - DISEASE PROGRESSION [None]
  - MYOCARDIAL INFARCTION [None]
